FAERS Safety Report 5715469-X (Version None)
Quarter: 2008Q2

REPORT INFORMATION
  Report Type: 
  Country: None (occurrence: None)
  Receive Date: 20080422
  Receipt Date: 20080408
  Transmission Date: 20081010
  Serious: Yes (Hospitalization)
  Sender: FDA-Public Use
  Company Number: 233385J08USA

PATIENT
  Age: 52 Year
  Sex: Female
  Weight: 65.7716 kg

DRUGS (6)
  1. REBIF [Suspect]
     Indication: MULTIPLE SCLEROSIS
     Dosage: 44 MCG, 3 IN WEEKS, SUBCUTANEOUS
     Route: 058
     Dates: start: 20071001, end: 20080101
  2. AMITRIPTLINE HCL [Concomitant]
  3. DITROPAN [Concomitant]
  4. ZETIA [Concomitant]
  5. BONIVA [Concomitant]
  6. BACTRIM DS [Concomitant]

REACTIONS (1)
  - BREAST CANCER FEMALE [None]
